FAERS Safety Report 12763448 (Version 2)
Quarter: 2016Q3

REPORT INFORMATION
  Report Type: Report from Study
  Country: BR (occurrence: BR)
  Receive Date: 20160920
  Receipt Date: 20160930
  Transmission Date: 20161109
  Serious: Yes (Other)
  Sender: FDA-Public Use
  Company Number: BR-JNJFOC-20160914648

PATIENT
  Sex: Male

DRUGS (1)
  1. REMICADE [Suspect]
     Active Substance: INFLIXIMAB
     Indication: PSORIASIS
     Route: 042

REACTIONS (8)
  - Blood pressure increased [Recovering/Resolving]
  - Off label use [Unknown]
  - Malaise [Recovering/Resolving]
  - Tremor [Recovering/Resolving]
  - Product use issue [Unknown]
  - Throat tightness [Recovering/Resolving]
  - Infusion related reaction [Recovering/Resolving]
  - Feeling cold [Recovering/Resolving]
